FAERS Safety Report 12116036 (Version 1)
Quarter: 2016Q1

REPORT INFORMATION
  Report Type: Spontaneous
  Country: US (occurrence: US)
  Receive Date: 20160225
  Receipt Date: 20160225
  Transmission Date: 20160526
  Serious: No
  Sender: FDA-Public Use
  Company Number: US-LANTHEUS-LMI-2015-00415

PATIENT
  Age: 60 Year
  Sex: Female
  Weight: 104 kg

DRUGS (2)
  1. DEFINITY [Suspect]
     Active Substance: PERFLUTREN
     Indication: ECHOCARDIOGRAM
     Dosage: DILUTED DEFINITY (DILUTION DETAILS UNKNOWN)
     Dates: start: 20150728, end: 20150728
  2. DEFINITY [Suspect]
     Active Substance: PERFLUTREN
     Dosage: DILUTED DEFINITY (DILUTION DETAILS UNKNOWN)
     Dates: start: 20150728, end: 20150728

REACTIONS (4)
  - Chest pain [Unknown]
  - Back pain [Unknown]
  - Pain in extremity [Unknown]
  - Dyspnoea [Unknown]

NARRATIVE: CASE EVENT DATE: 20150728
